FAERS Safety Report 12493045 (Version 4)
Quarter: 2016Q3

REPORT INFORMATION
  Report Type: Spontaneous
  Country: US (occurrence: US)
  Receive Date: 20160623
  Receipt Date: 20160830
  Transmission Date: 20161109
  Serious: No
  Sender: FDA-Public Use
  Company Number: US-LUNDBECK-DKLU2015270

PATIENT
  Age: 62 Year
  Sex: Male

DRUGS (10)
  1. FLUDROCORTISONE [Concomitant]
     Active Substance: FLUDROCORTISONE
     Indication: PRODUCT USED FOR UNKNOWN INDICATION
     Route: 065
  2. NORTHERA [Suspect]
     Active Substance: DROXIDOPA
     Route: 065
  3. NORTHERA [Suspect]
     Active Substance: DROXIDOPA
     Indication: ORTHOSTATIC HYPOTENSION
     Route: 065
     Dates: start: 201606
  4. NORTHERA [Suspect]
     Active Substance: DROXIDOPA
     Route: 065
  5. NORTHERA [Suspect]
     Active Substance: DROXIDOPA
     Route: 065
  6. NORTHERA [Suspect]
     Active Substance: DROXIDOPA
     Route: 065
  7. MIDODRINE [Suspect]
     Active Substance: MIDODRINE
     Indication: PRODUCT USED FOR UNKNOWN INDICATION
     Route: 065
  8. NORTHERA [Suspect]
     Active Substance: DROXIDOPA
     Route: 065
  9. NORTHERA [Suspect]
     Active Substance: DROXIDOPA
     Route: 065
  10. NORTHERA [Suspect]
     Active Substance: DROXIDOPA
     Route: 048

REACTIONS (13)
  - Acute stress disorder [Recovered/Resolved]
  - Nervousness [Unknown]
  - Fatigue [Unknown]
  - Flushing [Unknown]
  - Dizziness [Unknown]
  - Head discomfort [Unknown]
  - Drug effect decreased [Unknown]
  - Energy increased [Not Recovered/Not Resolved]
  - Therapeutic response unexpected [Unknown]
  - Dyspnoea [Unknown]
  - Palpitations [Unknown]
  - Blood pressure decreased [Unknown]
  - Feeling abnormal [Unknown]

NARRATIVE: CASE EVENT DATE: 201606
